FAERS Safety Report 6804298-1 (Version None)
Quarter: 2010Q2

REPORT INFORMATION
  Report Type: 
  Country: None (occurrence: None)
  Receive Date: 20100628
  Receipt Date: 20070315
  Transmission Date: 20101027
  Serious: No
  Sender: FDA-Public Use
  Company Number: US-PFIZER INC-2007019952

PATIENT
  Sex: Female
  Weight: 64.41 kg

DRUGS (10)
  1. CADUET [Suspect]
     Indication: HYPERTENSION
     Dosage: 5/20 MG
     Dates: start: 20050101
  2. CADUET [Suspect]
     Indication: BLOOD CHOLESTEROL INCREASED
  3. FUROSEMIDE [Concomitant]
  4. WARFARIN [Concomitant]
  5. VALSARTAN [Concomitant]
  6. SYNTHROID [Concomitant]
  7. DIGITEK [Concomitant]
  8. ISOSORBIDE [Concomitant]
  9. AMBIEN [Concomitant]
  10. TRICOR [Concomitant]

REACTIONS (2)
  - BLOOD CHOLESTEROL INCREASED [None]
  - HYPERSENSITIVITY [None]
